FAERS Safety Report 9107375 (Version 1)
Quarter: 2013Q1

REPORT INFORMATION
  Report Type: Spontaneous
  Country: FR (occurrence: FR)
  Receive Date: 20130221
  Receipt Date: 20130221
  Transmission Date: 20140127
  Serious: Yes (Other)
  Sender: FDA-Public Use
  Company Number: FR-JNJFOC-20130207879

PATIENT
  Age: 14 Year
  Sex: Male

DRUGS (4)
  1. RISPERDAL [Suspect]
     Indication: SCHIZOPHRENIA
     Route: 048
     Dates: start: 201201, end: 201205
  2. RISPERDAL [Suspect]
     Indication: SCHIZOPHRENIA
     Route: 048
     Dates: start: 201205, end: 201206
  3. RISPERDAL [Suspect]
     Indication: SCHIZOPHRENIA
     Route: 048
     Dates: start: 20121116
  4. RISPERDAL [Suspect]
     Indication: SCHIZOPHRENIA
     Dosage: DOSE OF RISPERDAL AT THE EXIT 1 MG A DAY FOLLOWED BY GRADUAL INCREASE AT 2 MG
     Route: 048
     Dates: start: 2012, end: 20121227

REACTIONS (1)
  - Nodule [Recovering/Resolving]
